FAERS Safety Report 6932776-3 (Version None)
Quarter: 2010Q3

REPORT INFORMATION
  Report Type: 
  Country: None (occurrence: None)
  Receive Date: 20100819
  Receipt Date: 20100809
  Transmission Date: 20110219
  Serious: Yes (Hospitalization, Other)
  Sender: FDA-Public Use
  Company Number: US-ABBOTT-10P-163-0663168-00

PATIENT
  Sex: Female

DRUGS (2)
  1. LUPRON DEPOT [Suspect]
     Indication: IN VITRO FERTILISATION
     Route: 050
  2. DARONDA DEPOT INJECTION [Suspect]
     Indication: IN VITRO FERTILISATION
     Route: 050

REACTIONS (1)
  - PRE-ECLAMPSIA [None]
